FAERS Safety Report 6194612-5 (Version None)
Quarter: 2009Q2

REPORT INFORMATION
  Report Type: 
  Country: None (occurrence: None)
  Receive Date: 20090519
  Receipt Date: 20090511
  Transmission Date: 20091009
  Serious: Yes (Disabling)
  Sender: FDA-Public Use
  Company Number: GB-ASTRAZENECA-2009GB01092

PATIENT
  Age: 63 Year
  Sex: Female

DRUGS (6)
  1. OMEPRAZOLE [Suspect]
     Indication: REFLUX OESOPHAGITIS
     Route: 048
     Dates: start: 20090421, end: 20090425
  2. LANSOPRAZOLE [Suspect]
     Route: 048
  3. DOMPERIDONE [Concomitant]
     Route: 048
  4. METOCLOPRAMIDE [Concomitant]
     Route: 058
  5. MORPHINE SULFATE [Concomitant]
     Indication: PAIN MANAGEMENT
     Route: 048
  6. MORPHINE SULFATE [Concomitant]
     Route: 058

REACTIONS (1)
  - ARTHROPATHY [None]
